FAERS Safety Report 25010937 (Version 1)
Quarter: 2025Q1

REPORT INFORMATION
  Report Type: Report from Study
  Country: CA (occurrence: CA)
  Receive Date: 20250225
  Receipt Date: 20250225
  Transmission Date: 20250409
  Serious: Yes (Other)
  Sender: ABBVIE
  Company Number: CA-ABBVIE-6141265

PATIENT
  Age: 65 Year
  Sex: Female

DRUGS (1)
  1. SKYRIZI [Suspect]
     Active Substance: RISANKIZUMAB-RZAA
     Indication: Crohn^s disease
     Route: 042
     Dates: start: 20250120

REACTIONS (5)
  - Intestinal operation [Unknown]
  - Abdominal pain [Unknown]
  - Frequent bowel movements [Unknown]
  - Procedural pain [Unknown]
  - Headache [Unknown]

NARRATIVE: CASE EVENT DATE: 20250101
